FAERS Safety Report 7167045-2 (Version None)
Quarter: 2010Q4

REPORT INFORMATION
  Report Type: 
  Country: None (occurrence: None)
  Receive Date: 20101216
  Receipt Date: 20101213
  Transmission Date: 20110411
  Serious: Yes (Other)
  Sender: FDA-Public Use
  Company Number: B0688625A

PATIENT
  Age: 43 Year
  Sex: Male

DRUGS (1)
  1. AMOXICILLIN [Suspect]

REACTIONS (3)
  - FAECES PALE [None]
  - LIVER FUNCTION TEST ABNORMAL [None]
  - PRURITUS [None]
